FAERS Safety Report 22950885 (Version 7)
Quarter: 2023Q4

REPORT INFORMATION
  Report Type: Spontaneous
  Country: US (occurrence: US)
  Receive Date: 20230916
  Receipt Date: 20231103
  Transmission Date: 20240109
  Serious: Yes (Hospitalization, Other)
  Sender: FDA-Public Use
  Company Number: US-UNITED THERAPEUTICS-UNT-2023-025446

PATIENT
  Sex: Female

DRUGS (5)
  1. REMODULIN [Suspect]
     Active Substance: TREPROSTINIL
     Indication: Pulmonary arterial hypertension
     Dosage: 0.043 ?G/KG, CONTINUING (AT PUMP RATE OF 0.018ML/HR)
     Route: 058
     Dates: start: 2023
  2. REMODULIN [Suspect]
     Active Substance: TREPROSTINIL
     Dosage: 0.04317 ?G/KG, CONTINUING
     Route: 058
     Dates: start: 2023
  3. REMODULIN [Suspect]
     Active Substance: TREPROSTINIL
     Dosage: UNK, CONTINUING
     Route: 058
     Dates: start: 202103
  4. AMBRISENTAN [Concomitant]
     Active Substance: AMBRISENTAN
     Indication: Product used for unknown indication
     Dosage: UNK
     Route: 065
  5. ELIQUIS [Concomitant]
     Active Substance: APIXABAN
     Indication: Product used for unknown indication
     Dosage: UNK
     Route: 065
     Dates: end: 202310

REACTIONS (16)
  - Feeling abnormal [Not Recovered/Not Resolved]
  - Nausea [Unknown]
  - Vomiting [Unknown]
  - Vertigo [Not Recovered/Not Resolved]
  - Ear infection [Unknown]
  - Troponin increased [Unknown]
  - Tinnitus [Unknown]
  - Dizziness [Not Recovered/Not Resolved]
  - Device alarm issue [Unknown]
  - Gastrointestinal haemorrhage [Unknown]
  - Asthenia [Unknown]
  - Flushing [Unknown]
  - Cough [Unknown]
  - Nasopharyngitis [Unknown]
  - Device malfunction [Recovered/Resolved]
  - Product availability issue [Unknown]

NARRATIVE: CASE EVENT DATE: 20230101
